FAERS Safety Report 9660690 (Version 1)
Quarter: 2013Q4

REPORT INFORMATION
  Report Type: Report from Study
  Country: US (occurrence: US)
  Receive Date: 20131031
  Receipt Date: 20131031
  Transmission Date: 20140711
  Serious: Yes (Hospitalization, Other)
  Sender: FDA-Public Use
  Company Number: US-ABBVIE-13P-163-1161493-00

PATIENT
  Age: 54 Year
  Sex: Male
  Weight: 52.21 kg

DRUGS (4)
  1. HUMIRA [Suspect]
     Indication: SPONDYLOARTHROPATHY
     Route: 058
     Dates: start: 2012, end: 201303
  2. HUMIRA [Suspect]
     Indication: ANKYLOSING SPONDYLITIS
     Route: 058
     Dates: start: 201309
  3. TEGRETOL [Concomitant]
     Indication: EPILEPSY
  4. KEPPRA [Concomitant]
     Indication: EPILEPSY

REACTIONS (3)
  - Small intestinal obstruction [Recovered/Resolved]
  - Pneumonia [Recovered/Resolved]
  - Abdominal pain [Recovered/Resolved]
